FAERS Safety Report 9279279 (Version 1)
Quarter: 2013Q2

REPORT INFORMATION
  Report Type: Spontaneous
  Country: US (occurrence: US)
  Receive Date: 20130508
  Receipt Date: 20130508
  Transmission Date: 20140414
  Serious: Yes (Hospitalization, Other)
  Sender: FDA-Public Use
  Company Number: US-BAXTER-2013BAX015420

PATIENT
  Age: 71 Year
  Sex: Male

DRUGS (2)
  1. DIANEAL LOW CALCIUM [Suspect]
     Indication: PERITONEAL DIALYSIS
     Route: 033
  2. CARAFATE [Suspect]
     Indication: DYSPEPSIA
     Route: 065
     Dates: start: 2013

REACTIONS (9)
  - Stress [Unknown]
  - Dyspepsia [Unknown]
  - Allergy to metals [Unknown]
  - Mental status changes [Recovering/Resolving]
  - Osteomyelitis [Recovering/Resolving]
  - Gastric dilatation [Unknown]
  - Procedural complication [Unknown]
  - Dyspnoea [Unknown]
  - Abdominal distension [Unknown]
